FAERS Safety Report 5943944-1 (Version None)
Quarter: 2008Q4

REPORT INFORMATION
  Report Type: 
  Country: None (occurrence: None)
  Receive Date: 20081021
  Receipt Date: 20080313
  Transmission Date: 20090506
  Serious: Yes (Other)
  Sender: FDA-Public Use
  Company Number: HQWYE206917JUL04

PATIENT
  Age: 24 Year
  Sex: Female
  Weight: 79.45 kg

DRUGS (5)
  1. PREMARIN [Suspect]
     Indication: HORMONE REPLACEMENT THERAPY
     Dosage: ORAL
     Route: 048
     Dates: start: 19910101, end: 20000101
  2. PREMPRO [Suspect]
  3. SYNTHROID [Concomitant]
  4. NORVASC [Concomitant]
  5. FUROSEMIDE (FUROSEMIDE) [Concomitant]

REACTIONS (1)
  - BREAST CANCER [None]
